FAERS Safety Report 20725216 (Version 1)
Quarter: 2022Q2

REPORT INFORMATION
  Report Type: Spontaneous
  Country: US (occurrence: US)
  Receive Date: 20220419
  Receipt Date: 20220419
  Transmission Date: 20220721
  Serious: No
  Sender: FDA-Public Use
  Company Number: US-PFIZER INC-202200150933

PATIENT
  Age: 52 Year
  Sex: Female

DRUGS (1)
  1. IBRANCE [Suspect]
     Active Substance: PALBOCICLIB
     Dosage: 125 MG, CYCLIC (BY MOUTH DAILY FOR 21 DAYS FOLLOWED BY 7 DAYS REST, THEN REPEAT  )
     Route: 048
     Dates: start: 20211003

REACTIONS (3)
  - Neoplasm progression [Unknown]
  - COVID-19 [Unknown]
  - Ovarian disorder [Unknown]

NARRATIVE: CASE EVENT DATE: 20211201
